FAERS Safety Report 23279046 (Version 1)
Quarter: 2023Q4

REPORT INFORMATION
  Report Type: Spontaneous
  Country: US (occurrence: US)
  Receive Date: 20231209
  Receipt Date: 20231209
  Transmission Date: 20240109
  Serious: Yes (Hospitalization, Other)
  Sender: FDA-Public Use
  Company Number: US-SUN PHARMACEUTICAL INDUSTRIES LTD-2023R1-422980

PATIENT
  Age: 63 Year
  Sex: Female

DRUGS (3)
  1. NICARDIPINE [Suspect]
     Active Substance: NICARDIPINE
     Indication: White coat hypertension
     Route: 065
  2. METOPROLOL [Suspect]
     Active Substance: METOPROLOL
     Indication: White coat hypertension
     Route: 048
  3. CAPTOPRIL [Suspect]
     Active Substance: CAPTOPRIL
     Indication: White coat hypertension
     Route: 065

REACTIONS (2)
  - Metastatic neoplasm [Unknown]
  - Phaeochromocytoma [Unknown]
